FAERS Safety Report 24171321 (Version 2)
Quarter: 2025Q3

REPORT INFORMATION
  Report Type: Spontaneous
  Country: US (occurrence: US)
  Receive Date: 20240805
  Receipt Date: 20250808
  Transmission Date: 20251021
  Serious: No
  Sender: RANBAXY
  Company Number: US-SUN PHARMACEUTICAL INDUSTRIES LTD-2024R1-455591

PATIENT
  Sex: Male

DRUGS (2)
  1. ODOMZO [Suspect]
     Active Substance: SONIDEGIB
     Indication: Basal cell carcinoma
     Dosage: 1 CAPSULE, QD
     Route: 048
  2. ODOMZO [Suspect]
     Active Substance: SONIDEGIB
     Route: 048
     Dates: start: 20240603

REACTIONS (2)
  - Asthenia [Unknown]
  - Fatigue [Unknown]
